FAERS Safety Report 5392983-0 (Version None)
Quarter: 2007Q3

REPORT INFORMATION
  Report Type: 
  Country: None (occurrence: None)
  Receive Date: 20070719
  Receipt Date: 20070711
  Transmission Date: 20080115
  Serious: Yes (Other)
  Sender: FDA-Public Use
  Company Number: 2007AL002810

PATIENT
  Age: 20 Year
  Sex: Female

DRUGS (10)
  1. DIAZEPAM [Suspect]
     Indication: ANXIETY DISORDER
     Dosage: PO
     Route: 048
     Dates: start: 19680101
  2. MOCLOBEMIDE [Concomitant]
  3. ZOPICLONE [Concomitant]
  4. TRIAZOLAM [Concomitant]
  5. FLUPENTIXOL [Concomitant]
  6. FLUNITRAZEPAM [Concomitant]
  7. CLORAZEPATE DIPOTASSIUM [Concomitant]
  8. SOTALOL HYDROCHLORIDE [Concomitant]
  9. SOBRIL [Concomitant]
  10. DIAZEPAM [Concomitant]

REACTIONS (6)
  - AMNESIA [None]
  - ANXIETY [None]
  - CONDITION AGGRAVATED [None]
  - CONFUSIONAL STATE [None]
  - HYPOTENSION [None]
  - MUSCULAR WEAKNESS [None]
